FAERS Safety Report 5485658-0 (Version None)
Quarter: 2007Q4

REPORT INFORMATION
  Report Type: 
  Country: None (occurrence: None)
  Receive Date: 20071011
  Receipt Date: 20070917
  Transmission Date: 20080405
  Serious: Yes (Life-Threatening, Hospitalization)
  Sender: FDA-Public Use
  Company Number: AR-JNJFOC-20070903510

PATIENT
  Age: 68 Year
  Sex: Male
  Weight: 53.6 kg

DRUGS (2)
  1. DECITABINE (DECITABINE) LYOPHILIZED [Suspect]
     Indication: MYELODYSPLASTIC SYNDROME
     Dosage: 10 MG/M2, INTRAVENOUS
     Route: 042
     Dates: start: 20070817, end: 20070821
  2. ALDOSTERONE (ALDOSTERONE) [Concomitant]

REACTIONS (6)
  - ASCITES [None]
  - DISORIENTATION [None]
  - GASTROINTESTINAL HAEMORRHAGE [None]
  - HYPOTENSION [None]
  - NEUTROPENIA [None]
  - THROMBOCYTOPENIA [None]
